FAERS Safety Report 4908416-1 (Version None)
Quarter: 2006Q1

REPORT INFORMATION
  Report Type: 
  Country: None (occurrence: None)
  Receive Date: 20060210
  Receipt Date: 20050714
  Transmission Date: 20060701
  Serious: No
  Sender: FDA-Public Use
  Company Number: US-GLAXOSMITHKLINE-A0566236A

PATIENT
  Age: 47 Year
  Sex: Female

DRUGS (1)
  1. PAXIL [Suspect]
     Dosage: 2TSP PER DAY
     Route: 048

REACTIONS (5)
  - ANXIETY [None]
  - DRUG INEFFECTIVE [None]
  - NERVOUSNESS [None]
  - PHARMACEUTICAL PRODUCT COMPLAINT [None]
  - TREMOR [None]
